FAERS Safety Report 4750591-6 (Version None)
Quarter: 2005Q3

REPORT INFORMATION
  Report Type: 
  Country: None (occurrence: None)
  Receive Date: 20050819
  Receipt Date: 20050811
  Transmission Date: 20060218
  Serious: Yes (Hospitalization, Disabling)
  Sender: FDA-Public Use
  Company Number: HQWYE852311AUG05

PATIENT
  Sex: Female

DRUGS (1)
  1. CORDARONE [Suspect]
     Indication: ARRHYTHMIA
     Route: 048
     Dates: start: 19960101

REACTIONS (10)
  - ABASIA [None]
  - DIARRHOEA [None]
  - DYSSTASIA [None]
  - FALL [None]
  - GAIT DISTURBANCE [None]
  - HIP FRACTURE [None]
  - LOWER LIMB FRACTURE [None]
  - NOCTURIA [None]
  - PRURITUS GENERALISED [None]
  - VISUAL ACUITY REDUCED [None]
